FAERS Safety Report 7251403-1 (Version None)
Quarter: 2011Q1

REPORT INFORMATION
  Report Type: 
  Country: None (occurrence: None)
  Receive Date: 20110128
  Receipt Date: 20110117
  Transmission Date: 20110831
  Serious: Yes (Death, Hospitalization, Other)
  Sender: FDA-Public Use
  Company Number: HU-ELI_LILLY_AND_COMPANY-HU201101004377

PATIENT
  Age: 62 Year
  Sex: Male

DRUGS (1)
  1. PEMETREXED [Suspect]
     Indication: SMALL CELL LUNG CANCER STAGE UNSPECIFIED
     Dosage: 985 MG ON AN OCCASION
     Route: 042
     Dates: start: 20101215, end: 20101215

REACTIONS (6)
  - PANCYTOPENIA [None]
  - ACUTE RESPIRATORY FAILURE [None]
  - MUCOSAL INFLAMMATION [None]
  - RENAL FAILURE [None]
  - DISSEMINATED INTRAVASCULAR COAGULATION [None]
  - SEPSIS [None]
